FAERS Safety Report 12080427 (Version 1)
Quarter: 2016Q1

REPORT INFORMATION
  Report Type: Spontaneous
  Country: US (occurrence: None)
  Receive Date: 20160212
  Receipt Date: 20160212
  Transmission Date: 20160526
  Serious: Yes (Hospitalization)
  Sender: FDA-Public Use
  Company Number: None

PATIENT
  Age: 6 Year
  Sex: Female
  Weight: 24.45 kg

DRUGS (4)
  1. METHOTREXATE [Suspect]
     Active Substance: METHOTREXATE
     Dates: end: 20150430
  2. MERCAPTOPURINE. [Suspect]
     Active Substance: MERCAPTOPURINE
     Dates: end: 20150430
  3. PREDNISONE. [Suspect]
     Active Substance: PREDNISONE
     Dates: end: 20150428
  4. VINCRISTINE SULFATE. [Suspect]
     Active Substance: VINCRISTINE SULFATE
     Dates: end: 20150424

REACTIONS (4)
  - Pneumocystis jirovecii pneumonia [None]
  - Tachypnoea [None]
  - Cough [None]
  - Hypoxia [None]

NARRATIVE: CASE EVENT DATE: 20150505
